FAERS Safety Report 17365339 (Version 1)
Quarter: 2020Q1

REPORT INFORMATION
  Report Type: Report from Study
  Country: PL (occurrence: PL)
  Receive Date: 20200204
  Receipt Date: 20200204
  Transmission Date: 20200409
  Serious: Yes (Hospitalization, Other)
  Sender: FDA-Public Use
  Company Number: PL-APNAR-000045

PATIENT
  Age: 64 Year
  Sex: Male

DRUGS (5)
  1. PROPAFENONE/PROPAFENONE HYDROCHLORIDE [Interacting]
     Active Substance: PROPAFENONE
     Indication: ATRIAL FIBRILLATION
  2. ACETYLSALICYLIC ACID [Concomitant]
     Active Substance: ASPIRIN
  3. BUPROPION. [Suspect]
     Active Substance: BUPROPION
     Indication: ANTIDEPRESSANT THERAPY
  4. ENALAPRIL [Concomitant]
     Active Substance: ENALAPRIL
  5. BISOPROLOL [Concomitant]
     Active Substance: BISOPROLOL

REACTIONS (6)
  - Electrocardiogram PQ interval prolonged [Unknown]
  - Drug interaction [Unknown]
  - Drug level increased [Unknown]
  - Dry mouth [Unknown]
  - Electrocardiogram QRS complex prolonged [Unknown]
  - Bradycardia [Unknown]
